FAERS Safety Report 22223821 (Version 1)
Quarter: 2023Q2

REPORT INFORMATION
  Report Type: Spontaneous
  Country: GB (occurrence: GB)
  Receive Date: 20230418
  Receipt Date: 20230418
  Transmission Date: 20230722
  Serious: Yes (Hospitalization, Other)
  Sender: FDA-Public Use
  Company Number: GB-MHRA-MED-202304111047513970-KLPGC

PATIENT
  Age: 41 Year
  Weight: 68 kg

DRUGS (1)
  1. MINOXIDIL [Suspect]
     Active Substance: MINOXIDIL
     Indication: Alopecia
     Dosage: 4 SPRAYS OVER SCALP; ;
     Route: 065
     Dates: start: 20220901, end: 20221001

REACTIONS (1)
  - Monoplegia [Recovered/Resolved with Sequelae]

NARRATIVE: CASE EVENT DATE: 20220901
